FAERS Safety Report 24785072 (Version 1)
Quarter: 2024Q4

REPORT INFORMATION
  Report Type: Spontaneous
  Country: CN (occurrence: CN)
  Receive Date: 20241228
  Receipt Date: 20241228
  Transmission Date: 20250115
  Serious: Yes (Life-Threatening)
  Sender: ROCHE
  Company Number: CN-ROCHE-10000159850

PATIENT
  Age: 67 Year
  Sex: Female
  Weight: 58.7 kg

DRUGS (2)
  1. OBINUTUZUMAB [Suspect]
     Active Substance: OBINUTUZUMAB
     Indication: Glomerulonephritis membranous
     Route: 042
     Dates: start: 20241204, end: 20241205
  2. SODIUM CHLORIDE [Concomitant]
     Active Substance: SODIUM CHLORIDE
     Indication: Glomerulonephritis membranous
     Route: 042
     Dates: start: 20241204, end: 20241205

REACTIONS (5)
  - Chills [Recovering/Resolving]
  - Blood pressure increased [Recovering/Resolving]
  - Sneezing [Recovering/Resolving]
  - Nasal obstruction [Recovering/Resolving]
  - Off label use [Unknown]

NARRATIVE: CASE EVENT DATE: 20241204
